FAERS Safety Report 8209846-5 (Version None)
Quarter: 2012Q1

REPORT INFORMATION
  Report Type: 
  Country: None (occurrence: None)
  Receive Date: 20120314
  Receipt Date: 20120302
  Transmission Date: 20120608
  Serious: Yes (Other)
  Sender: FDA-Public Use
  Company Number: AU-PFIZER INC-2012064736

PATIENT
  Age: 25 Year
  Sex: Male

DRUGS (5)
  1. ESCITALOPRAM OXALATE [Interacting]
     Indication: ANXIETY
     Dosage: 10 MG, 1X/DAY
  2. SERTRALINE HYDROCHLORIDE [Suspect]
     Dosage: 300 MG, 1X/DAY
  3. ESCITALOPRAM OXALATE [Interacting]
     Indication: SUBSTANCE USE
  4. HYPERICUM [Interacting]
     Indication: ANXIETY
     Dosage: 900 MG, 1X/DAY
  5. HYPERICUM [Interacting]
     Indication: SUBSTANCE ABUSE

REACTIONS (15)
  - OVERDOSE [None]
  - SUICIDE ATTEMPT [None]
  - PERSONALITY CHANGE [None]
  - DEPRESSED MOOD [None]
  - PHYSICAL ASSAULT [None]
  - EJACULATION FAILURE [None]
  - TOXICITY TO VARIOUS AGENTS [None]
  - MANIA [None]
  - DRUG INTERACTION [None]
  - AKATHISIA [None]
  - PARANOIA [None]
  - AGITATION [None]
  - IMPULSIVE BEHAVIOUR [None]
  - FEELING OF DESPAIR [None]
  - AGGRESSION [None]
